FAERS Safety Report 5720686-9 (Version None)
Quarter: 2008Q2

REPORT INFORMATION
  Report Type: 
  Country: None (occurrence: None)
  Receive Date: 20080429
  Receipt Date: 20080418
  Transmission Date: 20081010
  Serious: Yes (Other)
  Sender: FDA-Public Use
  Company Number: TH-JNJFOC-20080405065

PATIENT
  Age: 41 Year
  Sex: Female
  Weight: 51 kg

DRUGS (1)
  1. RISPERDAL M TABLETS [Suspect]
     Indication: SCHIZOPHRENIA
     Route: 048

REACTIONS (3)
  - DIZZINESS [None]
  - SOMNOLENCE [None]
  - SUICIDAL IDEATION [None]
